FAERS Safety Report 4303108-4 (Version None)
Quarter: 2004Q1

REPORT INFORMATION
  Report Type: 
  Country: None (occurrence: None)
  Receive Date: 20040126
  Receipt Date: 20030929
  Transmission Date: 20041129
  Serious: No
  Sender: FDA-Public Use
  Company Number: USA030948574

PATIENT
  Age: 47 Year
  Sex: Male

DRUGS (5)
  1. STRATTERA [Suspect]
     Dosage: 40 MG
     Dates: start: 20030922, end: 20030928
  2. RITALIN [Concomitant]
  3. WELLBUTRIN [Concomitant]
  4. GINSENG [Concomitant]
  5. VITAMIN C [Concomitant]

REACTIONS (5)
  - ASTHENIA [None]
  - CHILLS [None]
  - FEELING ABNORMAL [None]
  - HYPERHIDROSIS [None]
  - MICTURITION DISORDER [None]
